FAERS Safety Report 8632325 (Version 2)
Quarter: 2014Q1

REPORT INFORMATION
  Report Type: Spontaneous
  Country: US (occurrence: US)
  Receive Date: 20120625
  Receipt Date: 20140225
  Transmission Date: 20141002
  Serious: Yes (Congenital Anomaly, Other)
  Sender: FDA-Public Use
  Company Number: US-PFIZER INC-2012148606

PATIENT
  Sex: Male

DRUGS (20)
  1. PREDNISONE [Concomitant]
     Dosage: TWO DAYS, 1X/DAY
     Route: 064
     Dates: start: 200404
  2. SUDAFED [Concomitant]
     Dosage: UNK
     Route: 064
  3. BENADRYL [Concomitant]
     Dosage: UNK
     Route: 064
  4. TYLENOL [Concomitant]
     Dosage: UNK
     Route: 064
  5. IBUPROFEN [Concomitant]
     Dosage: UNK
     Route: 064
  6. ZOLOFT [Suspect]
     Indication: DEPRESSION
     Dosage: 50-150MG, 1X/DAY
     Route: 064
     Dates: start: 1997, end: 1998
  7. ZOLOFT [Suspect]
     Dosage: 100 TO 150MG, 1X/DAY
     Route: 064
     Dates: start: 1998, end: 200208
  8. ZOLOFT [Suspect]
     Dosage: 200 MG, 1X/DAY
     Route: 064
     Dates: start: 200208
  9. PROZAC [Concomitant]
     Indication: DEPRESSION
     Dosage: UNK
     Route: 064
  10. PRENATAL VITAMINS [Concomitant]
     Indication: NUTRITIONAL SUPPLEMENTATION
     Dosage: UNK
     Route: 064
     Dates: start: 2002
  11. PRENATAL VITAMINS [Concomitant]
     Dosage: UNK
     Route: 064
     Dates: start: 2004
  12. DIFLUCAN [Concomitant]
     Indication: FUNGAL INFECTION
     Dosage: UNK, 1X/DAY
     Route: 064
     Dates: start: 200312
  13. LEVOXYL [Concomitant]
     Indication: HYPOTHYROIDISM
     Dosage: 0.05-0.125MG, 1X/DAY
     Route: 064
     Dates: start: 200301, end: 2005
  14. ALBUTEROL [Concomitant]
     Indication: ASTHMA
     Dosage: TWO PUFFS, 4X/DAY
     Route: 064
     Dates: start: 200302, end: 2005
  15. FLONASE [Concomitant]
     Indication: HYPERSENSITIVITY
     Dosage: TWO SPRAYS, 1X/DAY
     Route: 064
     Dates: start: 200306, end: 2005
  16. ZOFRAN [Concomitant]
     Indication: NAUSEA
     Dosage: UNK, 1X/DAY
     Route: 064
     Dates: start: 200401
  17. ATROVENT [Concomitant]
     Indication: ASTHMA
     Dosage: TWO PUFFS, 4X/DAY
     Route: 064
     Dates: start: 200401
  18. AEROBID [Concomitant]
     Indication: ASTHMA
     Dosage: TWO- FOUR PUFFS, 2X/DAY
     Route: 064
     Dates: start: 200401, end: 2005
  19. SEREVENT DISKUS [Concomitant]
     Indication: ASTHMA
     Dosage: TWO PUFFS, 1X/DAY
     Route: 064
     Dates: start: 200401, end: 2005
  20. PREDNISONE [Concomitant]
     Indication: ASTHMA
     Dosage: FOUR DAYS, 2X/DAY
     Route: 064
     Dates: start: 200404

REACTIONS (6)
  - Anomalous pulmonary venous connection [Unknown]
  - Congenital arterial malformation [Unknown]
  - Atrial septal defect [Unknown]
  - Collateral circulation [Unknown]
  - Congenital anomaly [Unknown]
  - Maternal exposure during pregnancy [Unknown]
